FAERS Safety Report 17655803 (Version 1)
Quarter: 2020Q2

REPORT INFORMATION
  Report Type: Spontaneous
  Country: US (occurrence: US)
  Receive Date: 20200409
  Receipt Date: 20200409
  Transmission Date: 20200713
  Serious: No
  Sender: FDA-Public Use
  Company Number: None

PATIENT
  Age: 68 Year
  Sex: Male

DRUGS (1)
  1. OCTREOTIDE PFS 50MCG/ML [Suspect]
     Active Substance: OCTREOTIDE ACETATE
     Dosage: ?          OTHER STRENGTH:50 UG/ML;?
     Route: 058
     Dates: start: 202002, end: 202003

REACTIONS (3)
  - Therapy interrupted [None]
  - Rectal discharge [None]
  - Blood magnesium decreased [None]

NARRATIVE: CASE EVENT DATE: 20200409
